FAERS Safety Report 23431896 (Version 1)
Quarter: 2024Q1

REPORT INFORMATION
  Report Type: Spontaneous
  Country: US (occurrence: US)
  Receive Date: 20240123
  Receipt Date: 20240123
  Transmission Date: 20240410
  Serious: Yes (Death)
  Sender: FDA-Public Use
  Company Number: US-ARIS GLOBAL-POI0580202400093

PATIENT
  Age: 31 Year
  Sex: Male

DRUGS (8)
  1. GOPRELTO [Suspect]
     Active Substance: COCAINE HYDROCHLORIDE
     Indication: Product used for unknown indication
     Dosage: UNKNOWN
  2. GOPRELTO [Suspect]
     Active Substance: COCAINE HYDROCHLORIDE
     Dosage: UNKNOWN
  3. AMPHETAMINE\DEXTROAMPHETAMINE [Suspect]
     Active Substance: AMPHETAMINE\DEXTROAMPHETAMINE
     Indication: Product used for unknown indication
     Dosage: UNKNOWN
  4. AMPHETAMINE\DEXTROAMPHETAMINE [Suspect]
     Active Substance: AMPHETAMINE\DEXTROAMPHETAMINE
     Dosage: UNKNOWN
  5. CANNABIS SATIVA SUBSP. INDICA TOP [Suspect]
     Active Substance: CANNABIS SATIVA SUBSP. INDICA TOP
     Indication: Product used for unknown indication
     Dosage: UNKNOWN
  6. CANNABIS SATIVA SUBSP. INDICA TOP [Suspect]
     Active Substance: CANNABIS SATIVA SUBSP. INDICA TOP
     Dosage: UNKNOWN
  7. ALCOHOL [Suspect]
     Active Substance: ALCOHOL
     Indication: Product used for unknown indication
     Dosage: UNKNOWN
  8. ALCOHOL [Suspect]
     Active Substance: ALCOHOL
     Dosage: UNKNOWN

REACTIONS (2)
  - Completed suicide [Fatal]
  - Product use issue [Unknown]
